FAERS Safety Report 15612952 (Version 6)
Quarter: 2020Q1

REPORT INFORMATION
  Report Type: Report from Study
  Country: GB (occurrence: GB)
  Receive Date: 20181113
  Receipt Date: 20200331
  Transmission Date: 20200409
  Serious: Yes (Death, Other)
  Sender: FDA-Public Use
  Company Number: GB-PFIZER INC-2018458295

PATIENT
  Age: 72 Year
  Sex: Female

DRUGS (38)
  1. HERCEPTIN [Suspect]
     Active Substance: TRASTUZUMAB
     Dosage: 300 MG, EVERY 3 WEEKS
     Route: 042
     Dates: start: 20150603, end: 20150804
  2. HERCEPTIN [Suspect]
     Active Substance: TRASTUZUMAB
     Dosage: 275 MG, EVERY 3 WEEKS
     Route: 042
     Dates: start: 20150818, end: 20151211
  3. CETIRIZINE [Concomitant]
     Active Substance: CETIRIZINE HYDROCHLORIDE
     Dosage: 10 MG, UNK
     Route: 048
     Dates: start: 20150805, end: 20150807
  4. CETIRIZINE [Concomitant]
     Active Substance: CETIRIZINE HYDROCHLORIDE
     Dosage: 10 MG, UNK
     Route: 048
  5. DOCETAXEL. [Suspect]
     Active Substance: DOCETAXEL
     Indication: HER-2 POSITIVE BREAST CANCER
     Dosage: 92 MG, EVERY 3 WEEKS
     Route: 042
     Dates: start: 20150514, end: 20150715
  6. TRASTUZUMAB EMTANSINE [Suspect]
     Active Substance: ADO-TRASTUZUMAB EMTANSINE
     Dosage: 184 MG, EVERY 3 WEEKS
     Route: 042
     Dates: start: 20160426, end: 20160720
  7. DOMPERIDONE [Concomitant]
     Active Substance: DOMPERIDONE
     Indication: PROPHYLAXIS
     Dosage: 10 MG, DAILY
     Route: 048
     Dates: start: 20150803, end: 20150805
  8. CLAVULANIC ACID [Concomitant]
     Active Substance: CLAVULANIC ACID
     Indication: INFECTION
     Dosage: 125 MG, DAILY
     Route: 048
     Dates: start: 20150804, end: 20150810
  9. MIDAZOLAM. [Concomitant]
     Active Substance: MIDAZOLAM
     Dosage: UNK
     Route: 058
     Dates: start: 201901
  10. LANSOPRAZOLE. [Concomitant]
     Active Substance: LANSOPRAZOLE
     Indication: ABDOMINAL DISCOMFORT
     Dosage: 30 MG, UNK
     Dates: start: 20181002, end: 201901
  11. TRASTUZUMAB EMTANSINE [Suspect]
     Active Substance: ADO-TRASTUZUMAB EMTANSINE
     Dosage: 300 MG, EVERY 3 WEEKS
     Route: 042
     Dates: start: 20150603, end: 20150804
  12. CYCLIZINE [Concomitant]
     Active Substance: CYCLIZINE
     Dosage: UNK
     Route: 058
     Dates: start: 201901
  13. OMEPRAZOLE. [Concomitant]
     Active Substance: OMEPRAZOLE
     Indication: PROPHYLAXIS
     Dosage: 20 MG, 1X/DAY
     Route: 048
     Dates: start: 201901
  14. SANDO K [POTASSIUM CHLORIDE] [Concomitant]
     Dosage: 0.5 ML, UNK
     Route: 048
     Dates: start: 20181120, end: 20181125
  15. TRASTUZUMAB EMTANSINE [Suspect]
     Active Substance: ADO-TRASTUZUMAB EMTANSINE
     Dosage: 148 MG, EVERY 3 WEEKS
     Route: 042
     Dates: start: 20160810
  16. OXYCODONE [Concomitant]
     Active Substance: OXYCODONE
     Dosage: 1.25 MG, UNK
     Route: 058
     Dates: start: 201901
  17. HERCEPTIN [Suspect]
     Active Substance: TRASTUZUMAB
     Dosage: 300 MG, EVERY 3 WEEKS (LOADING DOSE)
     Route: 042
     Dates: start: 20160108, end: 20160405
  18. 3M CAVILON ANTIFUNGAL [Concomitant]
     Active Substance: MICONAZOLE NITRATE
     Indication: PROPHYLAXIS
     Dosage: 92 G, UNK
     Route: 061
     Dates: start: 20150804
  19. BUDESONIDE. [Concomitant]
     Active Substance: BUDESONIDE
     Dosage: 9 MG, UNK
     Route: 048
     Dates: start: 20181025, end: 20181114
  20. LACTULOSE. [Concomitant]
     Active Substance: LACTULOSE
     Dosage: UNK
     Route: 048
     Dates: start: 201901
  21. DOCETAXEL. [Suspect]
     Active Substance: DOCETAXEL
     Dosage: 86 MG, EVERY 3 WEEKS
     Route: 042
     Dates: start: 20150828, end: 20150918
  22. TRASTUZUMAB EMTANSINE [Suspect]
     Active Substance: ADO-TRASTUZUMAB EMTANSINE
     Dosage: 275 MG, EVERY 3 WEEKS
     Route: 042
     Dates: start: 20150818, end: 20151211
  23. AMOXYCILLIN [Concomitant]
     Active Substance: AMOXICILLIN
     Indication: INFECTION
     Dosage: 500 MG, DAILY
     Route: 048
     Dates: start: 20150804, end: 20150810
  24. DEXAMETHASONE. [Concomitant]
     Active Substance: DEXAMETHASONE
     Dosage: 2 MG, DAILY THREE DAYS PRIOR TO CHEMOTHERAPY
     Route: 048
     Dates: start: 20150803, end: 20150805
  25. CO-AMOXICLAVE [Concomitant]
     Active Substance: AMOXICILLIN\CLAVULANATE POTASSIUM
     Dosage: 625 MG, UNK
     Route: 048
     Dates: start: 20150804, end: 20150810
  26. LEVETIRACETAM. [Concomitant]
     Active Substance: LEVETIRACETAM
     Dosage: 500 MG, SINGLE
     Route: 048
     Dates: start: 20180918
  27. AROMASIN [Suspect]
     Active Substance: EXEMESTANE
     Dosage: 25 MG, DAILY
     Route: 048
     Dates: start: 20151013, end: 201604
  28. HERCEPTIN [Suspect]
     Active Substance: TRASTUZUMAB
     Indication: BREAST CANCER METASTATIC
     Dosage: 400 MG EVERY 3 WEEKS, LOADING DOSE
     Route: 042
     Dates: start: 20150513, end: 20150513
  29. TRASTUZUMAB EMTANSINE [Suspect]
     Active Substance: ADO-TRASTUZUMAB EMTANSINE
     Indication: BREAST CANCER METASTATIC
     Dosage: 400 MG, EVERY 3 WEEKS (LOADING DOSE)
     Route: 042
     Dates: start: 20150513, end: 20150513
  30. TRASTUZUMAB EMTANSINE [Suspect]
     Active Substance: ADO-TRASTUZUMAB EMTANSINE
     Dosage: 300 MG, EVERY 3 WEEKS (LOADING DOSE)
     Route: 042
     Dates: start: 20160108, end: 20160405
  31. RANITIDINE. [Concomitant]
     Active Substance: RANITIDINE
     Dosage: 150 MG, DAILY
     Route: 048
     Dates: start: 20150825, end: 20150827
  32. DEXAMETHASONE. [Concomitant]
     Active Substance: DEXAMETHASONE
     Dosage: 5 ML DAILY, LIQUID
     Route: 047
     Dates: start: 20150714, end: 20150923
  33. GLYCOPYRRONIUM BROMIDE [Concomitant]
     Active Substance: GLYCOPYRRONIUM
     Dosage: 200 UG, AS NEEDED
     Dates: start: 201901
  34. CO-AMOXICLAVE [Concomitant]
     Active Substance: AMOXICILLIN\CLAVULANATE POTASSIUM
     Dosage: 625 MG, UNK
     Route: 048
     Dates: start: 20180923, end: 20180930
  35. PERTUZUMAB. [Suspect]
     Active Substance: PERTUZUMAB
     Indication: BREAST CANCER METASTATIC
     Dosage: 420 MG, EVERY 3 WEEKS
     Route: 042
     Dates: start: 20150603, end: 20150807
  36. RANITIDINE. [Concomitant]
     Active Substance: RANITIDINE
     Dosage: 150 MG, DAILY
     Route: 048
     Dates: start: 20150805, end: 20150807
  37. CETIRIZINE [Concomitant]
     Active Substance: CETIRIZINE HYDROCHLORIDE
     Dosage: 10 MG, UNK
     Route: 048
     Dates: start: 20150825, end: 20150827
  38. LOPERAMIDE [Concomitant]
     Active Substance: LOPERAMIDE
     Dosage: 2 MG, UNK
     Route: 048
     Dates: start: 20181025

REACTIONS (18)
  - Nail dystrophy [Recovered/Resolved]
  - Dry skin [Recovered/Resolved]
  - Constipation [Not Recovered/Not Resolved]
  - Pruritus [Recovered/Resolved]
  - Chest discomfort [Recovered/Resolved]
  - Axillary pain [Recovered/Resolved]
  - Lacrimation increased [Recovered/Resolved]
  - Fatigue [Recovered/Resolved]
  - Insomnia [Not Recovered/Not Resolved]
  - Amnesia [Not Recovered/Not Resolved]
  - Anaphylactic reaction [Recovered/Resolved]
  - Memory impairment [Recovered/Resolved]
  - Neuropathy peripheral [Not Recovered/Not Resolved]
  - Neuropathy peripheral [Recovered/Resolved]
  - Ejection fraction decreased [Unknown]
  - Panic attack [Not Recovered/Not Resolved]
  - Neuropathy peripheral [Not Recovered/Not Resolved]
  - Catheter site haemorrhage [Recovered/Resolved]

NARRATIVE: CASE EVENT DATE: 20150624
